FAERS Safety Report 7090329-3 (Version None)
Quarter: 2010Q4

REPORT INFORMATION
  Report Type: 
  Country: None (occurrence: None)
  Receive Date: 20101109
  Receipt Date: 20101028
  Transmission Date: 20110411
  Serious: Yes (Other)
  Sender: FDA-Public Use
  Company Number: GB-JNJFOC-20101101776

PATIENT
  Age: 47 Year
  Sex: Male

DRUGS (3)
  1. FENTANYL [Suspect]
     Indication: NEURALGIA
     Route: 060
  2. PREGABALIN [Suspect]
     Indication: NEURALGIA
     Route: 065
  3. THALIDOMIDE [Concomitant]
     Indication: MULTIPLE MYELOMA
     Route: 065

REACTIONS (8)
  - DISTURBANCE IN ATTENTION [None]
  - DIZZINESS [None]
  - HALLUCINATION [None]
  - INCORRECT ROUTE OF DRUG ADMINISTRATION [None]
  - MYOCLONUS [None]
  - PRESYNCOPE [None]
  - SINUS BRADYCARDIA [None]
  - SOMNOLENCE [None]
